FAERS Safety Report 6045304-4 (Version None)
Quarter: 2009Q1

REPORT INFORMATION
  Report Type: 
  Country: None (occurrence: None)
  Receive Date: 20090121
  Receipt Date: 20090112
  Transmission Date: 20090719
  Serious: Yes (Other)
  Sender: FDA-Public Use
  Company Number: PHHY2009BR01394

PATIENT
  Sex: Female

DRUGS (1)
  1. FORASEQ [Suspect]
     Dosage: UNK
     Route: 048

REACTIONS (1)
  - ASTHMA [None]
